FAERS Safety Report 4413959-3 (Version None)
Quarter: 2004Q3

REPORT INFORMATION
  Report Type: 
  Country: None (occurrence: None)
  Receive Date: 20040729
  Receipt Date: 20040702
  Transmission Date: 20050211
  Serious: Yes (Hospitalization)
  Sender: FDA-Public Use
  Company Number: PHBS2004JP08731

PATIENT

DRUGS (1)
  1. LIORESAL [Suspect]

REACTIONS (1)
  - DEEP VEIN THROMBOSIS [None]
